FAERS Safety Report 7751881-5 (Version None)
Quarter: 2011Q3

REPORT INFORMATION
  Report Type: 
  Country: None (occurrence: None)
  Receive Date: 20110914
  Receipt Date: 20110914
  Transmission Date: 20111222
  Serious: Yes (Hospitalization)
  Sender: FDA-Public Use
  Company Number: None

PATIENT
  Age: 63 Year
  Sex: Male

DRUGS (9)
  1. LASIX [Concomitant]
  2. COUMADIN [Concomitant]
  3. DUCUSATE SODIUM [Concomitant]
  4. LACTULOSE [Concomitant]
  5. GLUCOTROL [Concomitant]
  6. REVLIMID [Suspect]
     Indication: MULTIPLE MYELOMA
     Dosage: 25MG QDX21D/28D ORALLY
     Route: 048
  7. REVLIMID [Concomitant]
  8. LOPRESSOR [Concomitant]
  9. UROCIT-K 10 [Concomitant]

REACTIONS (4)
  - METABOLIC ENCEPHALOPATHY [None]
  - FEMUR FRACTURE [None]
  - DEEP VEIN THROMBOSIS [None]
  - HYPERAMMONAEMIA [None]
